FAERS Safety Report 24671580 (Version 1)
Quarter: 2024Q4

REPORT INFORMATION
  Report Type: Spontaneous
  Country: US (occurrence: US)
  Receive Date: 20241127
  Receipt Date: 20241127
  Transmission Date: 20250114
  Serious: No
  Sender: SANDOZ
  Company Number: US-SANDOZ-SDZ2024US098250

PATIENT
  Sex: Male
  Weight: 51 kg

DRUGS (1)
  1. HYRIMOZ [Suspect]
     Active Substance: ADALIMUMAB-ADAZ
     Indication: Crohn^s disease
     Dosage: 80 MG N/A DOSE EVERY N/A N/A
     Route: 065
     Dates: start: 20241120, end: 20241120

REACTIONS (3)
  - Circumstance or information capable of leading to medication error [Unknown]
  - Needle issue [Unknown]
  - Device leakage [Unknown]
